FAERS Safety Report 23073617 (Version 1)
Quarter: 2023Q4

REPORT INFORMATION
  Report Type: Spontaneous
  Country: ES (occurrence: ES)
  Receive Date: 20231017
  Receipt Date: 20231017
  Transmission Date: 20240109
  Serious: Yes (Hospitalization)
  Sender: FDA-Public Use
  Company Number: ES-CHEPLA-1200141515

PATIENT
  Age: 76 Year
  Sex: Male

DRUGS (3)
  1. CAPECITABINE [Suspect]
     Active Substance: CAPECITABINE
     Indication: Colon neoplasm
     Dosage: XELOX CHEMOTHERAPY SCHEME
     Route: 048
  2. BEVACIZUMAB [Suspect]
     Active Substance: BEVACIZUMAB
     Indication: Colon neoplasm
  3. OXALIPLATIN [Suspect]
     Active Substance: OXALIPLATIN
     Indication: Colon neoplasm
     Dosage: XELOX CHEMOTHERAPY SCHEME

REACTIONS (8)
  - Hypoalbuminaemia [Recovered/Resolved]
  - Coagulopathy [Recovered/Resolved]
  - Leukopenia [Recovered/Resolved]
  - Hypocalcaemia [Recovered/Resolved]
  - Enteritis [Recovered/Resolved]
  - Diarrhoea [Recovered/Resolved]
  - Abdominal pain [Recovered/Resolved]
  - Pyrexia [Recovered/Resolved]
